FAERS Safety Report 4307776-2 (Version None)
Quarter: 2004Q1

REPORT INFORMATION
  Report Type: 
  Country: None (occurrence: None)
  Receive Date: 20040225
  Receipt Date: 20030512
  Transmission Date: 20041129
  Serious: Yes (Disabling)
  Sender: FDA-Public Use
  Company Number: WAES 0305USA01340

PATIENT

DRUGS (1)
  1. ZOCOR [Suspect]
     Indication: BLOOD CHOLESTEROL INCREASED
     Dosage: 5 MG/HS/PO
     Route: 048
     Dates: start: 19980501

REACTIONS (3)
  - ARTHRALGIA [None]
  - MUSCLE CRAMP [None]
  - MYALGIA [None]
